FAERS Safety Report 13333711 (Version 4)
Quarter: 2018Q1

REPORT INFORMATION
  Report Type: Spontaneous
  Country: DE (occurrence: DE)
  Receive Date: 20170313
  Receipt Date: 20180308
  Transmission Date: 20180508
  Serious: Yes (Hospitalization, Other)
  Sender: FDA-Public Use
  Company Number: DE-PFIZER INC-2017103884

PATIENT
  Age: 39 Year
  Sex: Female

DRUGS (6)
  1. GENTAMICIN. [Concomitant]
     Active Substance: GENTAMICIN
     Indication: SEPSIS
  2. CIPROFLOXACIN. [Suspect]
     Active Substance: CIPROFLOXACIN
     Indication: PSEUDOMONAS INFECTION
  3. GENTAMICIN. [Concomitant]
     Active Substance: GENTAMICIN
     Indication: POST PROCEDURAL INFECTION
     Dosage: 150 MG, DAILY
     Route: 042
  4. CIPROFLOXACIN. [Suspect]
     Active Substance: CIPROFLOXACIN
     Indication: POST PROCEDURAL INFECTION
     Dosage: 800 MG, DAILY
     Route: 042
  5. CIPROFLOXACIN. [Suspect]
     Active Substance: CIPROFLOXACIN
     Indication: SEPSIS
  6. CIPROFLOXACIN. [Suspect]
     Active Substance: CIPROFLOXACIN
     Indication: OTITIS MEDIA
     Dosage: 500 MG, DAILY
     Route: 048

REACTIONS (3)
  - Tendon rupture [Unknown]
  - Tendon necrosis [Unknown]
  - Tendon disorder [Unknown]
